FAERS Safety Report 10455082 (Version 1)
Quarter: 2014Q3

REPORT INFORMATION
  Report Type: Spontaneous
  Country: SG (occurrence: SG)
  Receive Date: 20140916
  Receipt Date: 20140916
  Transmission Date: 20150326
  Serious: Yes (Death, Other)
  Sender: FDA-Public Use
  Company Number: PHHY2014SG114992

PATIENT
  Age: 56 Year
  Sex: Female

DRUGS (8)
  1. DEXAMETHASONE SODIUM PHOSPHATE [Concomitant]
     Active Substance: DEXAMETHASONE SODIUM PHOSPHATE
     Dates: end: 200809
  2. IDARUBICIN [Suspect]
     Active Substance: IDARUBICIN
     Indication: MYELODYSPLASTIC SYNDROME
     Dosage: 12 MG/M2/DAY ON DAYS 1 AND 2
     Route: 040
     Dates: start: 200903
  3. CYTARABINE. [Suspect]
     Active Substance: CYTARABINE
     Indication: ACUTE MYELOID LEUKAEMIA
     Dosage: 100 MG/M2/DAY
     Route: 041
     Dates: start: 200902
  4. TEMOZOLOMIDE [Suspect]
     Active Substance: TEMOZOLOMIDE
     Dosage: 150 MG/M2, FOR 5 DAYS EVERY MONTH
     Dates: start: 20080520
  5. TEMOZOLOMIDE [Suspect]
     Active Substance: TEMOZOLOMIDE
     Dates: start: 20081222, end: 20081226
  6. IDARUBICIN [Suspect]
     Active Substance: IDARUBICIN
     Indication: ACUTE MYELOID LEUKAEMIA
     Dosage: 12 MG/M2/DAY ON DAYS 1, 2 AND 3
     Route: 040
     Dates: start: 200902
  7. CYTARABINE. [Suspect]
     Active Substance: CYTARABINE
     Indication: MYELODYSPLASTIC SYNDROME
     Dosage: 100 MG/M2/DAY
     Route: 041
     Dates: start: 200903
  8. TEMOZOLOMIDE [Suspect]
     Active Substance: TEMOZOLOMIDE
     Indication: GLIOBLASTOMA MULTIFORME
     Dosage: 75 MG/M2/DAY

REACTIONS (13)
  - Intracranial tumour haemorrhage [Unknown]
  - Haematotoxicity [Unknown]
  - Death [Fatal]
  - Malignant neoplasm progression [Unknown]
  - Myelodysplastic syndrome [Unknown]
  - Pancytopenia [Unknown]
  - Bone marrow failure [Unknown]
  - Neutropenia [Unknown]
  - Aphasia [Unknown]
  - Drug effect incomplete [Unknown]
  - Headache [Unknown]
  - Acute myeloid leukaemia [Unknown]
  - Glioblastoma multiforme [Unknown]

NARRATIVE: CASE EVENT DATE: 200811
